FAERS Safety Report 4928733-9 (Version None)
Quarter: 2006Q1

REPORT INFORMATION
  Report Type: 
  Country: None (occurrence: None)
  Receive Date: 20060227
  Receipt Date: 20060227
  Transmission Date: 20060701
  Serious: No
  Sender: FDA-Public Use
  Company Number: None

PATIENT
  Sex: Female
  Weight: 54.4316 kg

DRUGS (2)
  1. ENBREL [Suspect]
     Indication: PSORIASIS
     Dosage: 50 MG TWICE WEEKLY SQ
     Route: 058
     Dates: start: 20060113, end: 20060131
  2. ENBREL [Suspect]
     Indication: PSORIATIC ARTHROPATHY
     Dosage: 50 MG TWICE WEEKLY SQ
     Route: 058
     Dates: start: 20060113, end: 20060131

REACTIONS (2)
  - DYSGEUSIA [None]
  - PAROSMIA [None]
